FAERS Safety Report 14837051 (Version 2)
Quarter: 2018Q2

REPORT INFORMATION
  Report Type: Report from Study
  Country: IT (occurrence: IT)
  Receive Date: 20180502
  Receipt Date: 20180626
  Transmission Date: 20180711
  Serious: Yes (Other)
  Sender: FDA-Public Use
  Company Number: IT-PFIZER INC-2018175682

PATIENT
  Age: 18 Year
  Sex: Female

DRUGS (1)
  1. ZITROMAX [Suspect]
     Active Substance: AZITHROMYCIN
     Indication: INFECTION
     Dosage: 500 MG, AS NEEDED
     Route: 048

REACTIONS (3)
  - Pruritus generalised [Recovering/Resolving]
  - Erythema [Recovering/Resolving]
  - Throat irritation [Recovering/Resolving]

NARRATIVE: CASE EVENT DATE: 20180318
